FAERS Safety Report 10955154 (Version 1)
Quarter: 2015Q1

REPORT INFORMATION
  Report Type: Spontaneous
  Country: US (occurrence: US)
  Receive Date: 20150326
  Receipt Date: 20150326
  Transmission Date: 20150721
  Serious: Yes (Other)
  Sender: FDA-Public Use
  Company Number: PHHY2015US031689

PATIENT
  Age: 52 Year
  Sex: Female
  Weight: 58.96 kg

DRUGS (4)
  1. GABAPENTIN. [Suspect]
     Active Substance: GABAPENTIN
     Indication: RESTLESS LEGS SYNDROME
     Dosage: 300 MG, BID
     Route: 065
  2. LORAZEPAM. [Suspect]
     Active Substance: LORAZEPAM
     Indication: INSOMNIA
     Dosage: 1 MG, UNK
     Route: 065
  3. DULOXETINE HYDROCHLORIDE. [Suspect]
     Active Substance: DULOXETINE HYDROCHLORIDE
     Indication: DEPRESSION
     Dosage: 30 MG, QD
     Route: 065
  4. FERROUS GLUCONATE [Concomitant]
     Active Substance: FERROUS GLUCONATE
     Indication: ANAEMIA
     Dosage: 324 MG, BID
     Route: 065

REACTIONS (10)
  - Cerebellar syndrome [Unknown]
  - Initial insomnia [Unknown]
  - Rapid eye movements sleep abnormal [Recovering/Resolving]
  - Terminal insomnia [Unknown]
  - Dysarthria [Unknown]
  - Somatoform disorder [Unknown]
  - Middle insomnia [Unknown]
  - Fatigue [Unknown]
  - Periodic limb movement disorder [Unknown]
  - Somnolence [Unknown]
